FAERS Safety Report 4360466-2 (Version None)
Quarter: 2004Q2

REPORT INFORMATION
  Report Type: 
  Country: None (occurrence: None)
  Receive Date: 20040514
  Receipt Date: 20040503
  Transmission Date: 20050107
  Serious: Yes (Hospitalization, Disabling)
  Sender: FDA-Public Use
  Company Number: 002#8#2004-00015

PATIENT
  Age: 84 Year
  Sex: Male
  Weight: 63.5036 kg

DRUGS (5)
  1. REGLAN [Suspect]
     Indication: GASTROINTESTINAL DISORDER
     Dosage: 10MG, 4 IN 1 D, ORAL
     Route: 048
     Dates: start: 20011115
  2. LEVOTHYROXINE SODIUM [Concomitant]
  3. DRONABINOL [Concomitant]
  4. CARBIDOPA 25MG AND LEVODOPA 100MG [Concomitant]
  5. BUPROPION HCL [Concomitant]

REACTIONS (13)
  - ACTIVITIES OF DAILY LIVING IMPAIRED [None]
  - BRADYKINESIA [None]
  - COGNITIVE DISORDER [None]
  - COGWHEEL RIGIDITY [None]
  - CONFUSIONAL STATE [None]
  - DEMENTIA [None]
  - DEPRESSIVE SYMPTOM [None]
  - DYSPHAGIA [None]
  - FAILURE TO THRIVE [None]
  - GENERAL PHYSICAL HEALTH DETERIORATION [None]
  - INCONTINENCE [None]
  - MOBILITY DECREASED [None]
  - WEIGHT DECREASED [None]
